FAERS Safety Report 8377924-6 (Version None)
Quarter: 2012Q2

REPORT INFORMATION
  Report Type: 
  Country: None (occurrence: None)
  Receive Date: 20120522
  Receipt Date: 20120508
  Transmission Date: 20120825
  Serious: Yes (Other)
  Sender: FDA-Public Use
  Company Number: US-ELI_LILLY_AND_COMPANY-US201205002850

PATIENT
  Sex: Female
  Weight: 108.84 kg

DRUGS (13)
  1. CYMBALTA [Suspect]
     Indication: DEPRESSION
     Dosage: UNK, UNKNOWN
  2. HYDROCHLOROTHIAZIDE [Concomitant]
     Indication: OEDEMA PERIPHERAL
     Dosage: 25 MG, QD
  3. LIPITOR [Concomitant]
     Indication: BLOOD CHOLESTEROL INCREASED
     Dosage: 40 MG, QD
     Route: 048
  4. CITALOPRAM [Concomitant]
     Indication: DEPRESSION
  5. ASCORBIC ACID [Concomitant]
  6. LOMOTIL [Concomitant]
     Indication: COLITIS
     Dosage: 0.25 MG, TID
  7. VITAMIN D [Concomitant]
  8. LYRICA [Concomitant]
     Indication: FIBROMYALGIA
     Dosage: 75 MG, BID
     Route: 048
  9. SULFASALAZINE [Concomitant]
     Indication: ARTHRITIS
     Dosage: 1000 MG, BID
  10. SALSALATE [Concomitant]
     Indication: MUSCULOSKELETAL PAIN
     Dosage: 1500 MG, BID
  11. LYRICA [Concomitant]
     Dosage: 150 MG, BID
     Route: 048
  12. LYRICA [Concomitant]
     Dosage: 75 MG, BID
  13. CALCITRIOL [Concomitant]

REACTIONS (5)
  - DIABETES MELLITUS [None]
  - BLOOD POTASSIUM DECREASED [None]
  - THYROID NEOPLASM [None]
  - DIZZINESS [None]
  - THYROID CANCER [None]
